FAERS Safety Report 7356021-2 (Version None)
Quarter: 2011Q1

REPORT INFORMATION
  Report Type: 
  Country: None (occurrence: None)
  Receive Date: 20110316
  Receipt Date: 20110311
  Transmission Date: 20110831
  Serious: Yes (Life-Threatening, Other)
  Sender: FDA-Public Use
  Company Number: JP-CEPHALON-2011001164

PATIENT
  Age: 66 Year
  Sex: Male

DRUGS (1)
  1. BENDAMUSTINE HCL [Suspect]
     Indication: B-CELL LYMPHOMA
     Dates: start: 20110302, end: 20110303

REACTIONS (2)
  - MULTI-ORGAN FAILURE [None]
  - RENAL IMPAIRMENT [None]
